FAERS Safety Report 5270279-5 (Version None)
Quarter: 2007Q1

REPORT INFORMATION
  Report Type: 
  Country: None (occurrence: None)
  Receive Date: 20070320
  Receipt Date: 20070308
  Transmission Date: 20070707
  Serious: Yes (Other)
  Sender: FDA-Public Use
  Company Number: US-PFIZER INC-2007018677

PATIENT
  Sex: Female
  Weight: 74.8 kg

DRUGS (2)
  1. CHANTIX [Suspect]
     Indication: EX-SMOKER
     Dates: start: 20061207, end: 20070228
  2. TOPROL-XL [Concomitant]

REACTIONS (8)
  - ANXIETY [None]
  - BACK PAIN [None]
  - DEPRESSION [None]
  - DIZZINESS [None]
  - LABYRINTHITIS [None]
  - NAUSEA [None]
  - SPEECH DISORDER [None]
  - WEIGHT INCREASED [None]
